FAERS Safety Report 11698138 (Version 1)
Quarter: 2015Q4

REPORT INFORMATION
  Report Type: Spontaneous
  Country: US (occurrence: US)
  Receive Date: 20151104
  Receipt Date: 20151104
  Transmission Date: 20160304
  Serious: No
  Sender: FDA-Public Use
  Company Number: GXBR2015US002141

PATIENT
  Age: 2 Year
  Sex: Male
  Weight: 12.47 kg

DRUGS (2)
  1. CEFDINIR. [Suspect]
     Active Substance: CEFDINIR
     Indication: EAR INFECTION
  2. CEFDINIR. [Suspect]
     Active Substance: CEFDINIR
     Indication: SINUSITIS
     Dosage: 4 ML, UNK
     Route: 048
     Dates: start: 20150917

REACTIONS (2)
  - Diarrhoea [Recovered/Resolved]
  - Retching [Recovered/Resolved]

NARRATIVE: CASE EVENT DATE: 20150917
